FAERS Safety Report 6139623-0 (Version None)
Quarter: 2009Q1

REPORT INFORMATION
  Report Type: 
  Country: None (occurrence: None)
  Receive Date: 20090331
  Receipt Date: 20090331
  Transmission Date: 20090719
  Serious: Yes (Life-Threatening)
  Sender: FDA-Public Use
  Company Number: None

PATIENT
  Age: 52 Year
  Sex: Male
  Weight: 87 kg

DRUGS (10)
  1. DILAUDID [Suspect]
     Indication: ABDOMINAL PAIN
     Dosage: 1MG X1 IV
     Route: 042
     Dates: start: 20090112
  2. ATIVAN [Suspect]
     Indication: ANXIETY
     Dosage: 1MG X1 IV
     Route: 042
     Dates: start: 20090112
  3. NEXIUM [Concomitant]
  4. KAYEXALATE [Concomitant]
  5. LASIX [Concomitant]
  6. METOPROLOL [Concomitant]
  7. DIGOXIN [Concomitant]
  8. ASPIRIN [Concomitant]
  9. TEMAZEPAM [Concomitant]
  10. DUONEB [Concomitant]

REACTIONS (5)
  - CARDIAC ARREST [None]
  - DYSPNOEA [None]
  - LETHARGY [None]
  - TACHYCARDIA [None]
  - TONIC CONVULSION [None]
